FAERS Safety Report 7207185-2 (Version None)
Quarter: 2011Q1

REPORT INFORMATION
  Report Type: 
  Country: None (occurrence: None)
  Receive Date: 20110103
  Receipt Date: 20101223
  Transmission Date: 20110831
  Serious: Yes (Hospitalization, Other)
  Sender: FDA-Public Use
  Company Number: US-ELI_LILLY_AND_COMPANY-US201012006340

PATIENT
  Sex: Female

DRUGS (2)
  1. MORPHINE [Concomitant]
  2. FORTEO [Suspect]
     Indication: OSTEOPOROSIS
     Dosage: 20 UG, DAILY (1/D)
     Dates: start: 20101210, end: 20101213

REACTIONS (5)
  - PELVIC FRACTURE [None]
  - FALL [None]
  - BALANCE DISORDER [None]
  - SPINAL FRACTURE [None]
  - DIZZINESS [None]
